FAERS Safety Report 24286739 (Version 1)
Quarter: 2024Q3

REPORT INFORMATION
  Report Type: Spontaneous
  Country: US (occurrence: None)
  Receive Date: 20240903
  Receipt Date: 20240903
  Transmission Date: 20241016
  Serious: Yes (Hospitalization)
  Sender: Public
  Company Number: None

PATIENT
  Age: 31 Year
  Sex: Male

DRUGS (4)
  1. L-GLUTAMINE [Suspect]
     Active Substance: GLUTAMINE
     Indication: Sickle cell disease
     Dosage: FREQUENCY : TWICE A DAY;?DOSE AND FREQUENCY=MIX 2 PACKETS WITH 8 OUNCES OF COLD OR ROOM TEMPERATURE
     Route: 048
     Dates: start: 202407
  2. L-GLUTAMINE [Suspect]
     Active Substance: GLUTAMINE
     Indication: Blood electrolytes abnormal
  3. JADENU [Concomitant]
     Active Substance: DEFERASIROX
  4. DEFERASIROX [Concomitant]
     Active Substance: DEFERASIROX

REACTIONS (1)
  - Sickle cell anaemia with crisis [None]

NARRATIVE: CASE EVENT DATE: 20240823
